FAERS Safety Report 7194944-8 (Version None)
Quarter: 2010Q4

REPORT INFORMATION
  Report Type: 
  Country: None (occurrence: None)
  Receive Date: 20101223
  Receipt Date: 20100921
  Transmission Date: 20110411
  Serious: No
  Sender: FDA-Public Use
  Company Number: US-AMGEN-KDL438401

PATIENT

DRUGS (1)
  1. ENBREL [Suspect]
     Indication: RHEUMATOID ARTHRITIS
     Dosage: 25 MG, QWK
     Route: 058
     Dates: start: 20030801

REACTIONS (17)
  - ANKLE FRACTURE [None]
  - ARTHROPATHY [None]
  - CELLULITIS [None]
  - EAR CONGESTION [None]
  - EYE INFECTION [None]
  - FATIGUE [None]
  - GLUCOSE TOLERANCE IMPAIRED [None]
  - INJECTION SITE CELLULITIS [None]
  - INJECTION SITE REACTION [None]
  - NECK PAIN [None]
  - NODULE ON EXTREMITY [None]
  - OEDEMA PERIPHERAL [None]
  - PAIN IN EXTREMITY [None]
  - PYREXIA [None]
  - RHEUMATOID ARTHRITIS [None]
  - SINUS CONGESTION [None]
  - SINUSITIS [None]
